FAERS Safety Report 7967184-X (Version None)
Quarter: 2011Q4

REPORT INFORMATION
  Report Type: 
  Country: None (occurrence: None)
  Receive Date: 20111206
  Receipt Date: 20111122
  Transmission Date: 20120403
  Serious: Yes (Life-Threatening)
  Sender: FDA-Public Use
  Company Number: TCI2011A06141

PATIENT
  Age: 77 Year
  Sex: Male

DRUGS (5)
  1. PIOGLITAZONE [Suspect]
     Indication: DIABETES MELLITUS
     Dosage: 30 MG (30 MG, 1 D) PER ORAL
     Route: 048
     Dates: start: 20110831, end: 20111104
  2. MAIBASTAN (PRAVASTATIN SODIUM) [Concomitant]
  3. VOGLIBOSE [Concomitant]
  4. BASTAMION (VOGLIBOSE) [Concomitant]
  5. ACTOS [Suspect]
     Indication: DIABETES MELLITUS
     Dosage: 30 MG (30 MG, 1 IN 1 D) PER ORAL
     Route: 048
     Dates: start: 20050204, end: 20110830

REACTIONS (2)
  - NEPHROLITHIASIS [None]
  - BLADDER TRANSITIONAL CELL CARCINOMA [None]
